FAERS Safety Report 10040685 (Version 3)
Quarter: 2014Q2

REPORT INFORMATION
  Report Type: Spontaneous
  Country: BR (occurrence: BR)
  Receive Date: 20140327
  Receipt Date: 20140521
  Transmission Date: 20141212
  Serious: Yes (Other)
  Sender: FDA-Public Use
  Company Number: BR-ROCHE-1354902

PATIENT
  Age: 2 Month
  Sex: Female
  Weight: 7.8 kg

DRUGS (5)
  1. ROCEPHIN [Suspect]
     Indication: INFECTION
     Route: 042
     Dates: start: 20140217, end: 201402
  2. OXACILLIN [Concomitant]
     Route: 042
     Dates: start: 20140216
  3. MYLICON [Concomitant]
     Route: 065
     Dates: start: 20140216
  4. NOVALGINA [Concomitant]
     Route: 065
     Dates: start: 20140216
  5. ALIVIUM [Concomitant]
     Route: 065
     Dates: start: 20140216

REACTIONS (6)
  - Product contamination [Unknown]
  - Convulsion [Recovered/Resolved]
  - Hypertonia [Recovered/Resolved]
  - Cyanosis [Recovered/Resolved]
  - Polyuria [Recovered/Resolved]
  - Diarrhoea [Recovered/Resolved]
